FAERS Safety Report 5077645-1 (Version None)
Quarter: 2006Q3

REPORT INFORMATION
  Report Type: 
  Country: None (occurrence: None)
  Receive Date: 20060810
  Receipt Date: 20060519
  Transmission Date: 20061208
  Serious: No
  Sender: FDA-Public Use
  Company Number: US-GLAXOSMITHKLINE-A0606354A

PATIENT
  Sex: Female

DRUGS (2)
  1. PAXIL [Suspect]
     Indication: NEURALGIA
     Dosage: 5MG PER DAY
     Route: 048
     Dates: start: 20060408
  2. MULTIVITAMIN [Concomitant]

REACTIONS (1)
  - TREMOR [None]
